FAERS Safety Report 8068301-6 (Version None)
Quarter: 2012Q1

REPORT INFORMATION
  Report Type: 
  Country: None (occurrence: None)
  Receive Date: 20120124
  Receipt Date: 20111007
  Transmission Date: 20120608
  Serious: Yes (Hospitalization)
  Sender: FDA-Public Use
  Company Number: US-AMGEN-USASP2011038380

PATIENT
  Age: 62 Year
  Sex: Female
  Weight: 122 kg

DRUGS (17)
  1. CARVEDILOL [Concomitant]
     Indication: ESSENTIAL HYPERTENSION
     Dosage: 25 MG, QD
     Route: 048
  2. MAGNESIUM HYDROXIDE TAB [Concomitant]
     Dosage: 10 ML, QHS
  3. HYDRALAZINE HYDROCHLORIDE [Concomitant]
     Dosage: 25 MG, TID
  4. ACETAMINOPHEN [Concomitant]
     Dosage: 650 MG, Q4H
     Route: 048
  5. INSULIN [Concomitant]
     Indication: DIABETES MELLITUS
  6. LANTUS [Concomitant]
     Indication: TYPE 2 DIABETES MELLITUS
     Dosage: 20 IU, QHS
  7. CRESTOR [Concomitant]
     Indication: HYPERLIPIDAEMIA
     Dosage: 20 MG, QD
     Route: 048
  8. MICARDIS [Concomitant]
     Indication: ESSENTIAL HYPERTENSION
     Dosage: 40 MG, QD
     Route: 048
     Dates: end: 20110809
  9. SODIUM POLYSTYRENE SULFONATE [Concomitant]
  10. PRAMLINTIDE ACETATE [Concomitant]
     Indication: TYPE 2 DIABETES MELLITUS
     Dosage: 1000 MUG/ML, TID
  11. PROLIA [Suspect]
     Indication: OSTEOPOROSIS
     Dosage: 60 MG, ONE TIME DOSE
     Route: 058
     Dates: start: 20110308
  12. PROCHLORPERAZINE MALEATE [Concomitant]
     Dosage: 10 MG, Q6H
     Route: 048
  13. FERROUS SULFATE TAB [Concomitant]
     Dosage: 650 MG, QD
     Route: 048
  14. VITAMIN D2 [Concomitant]
     Indication: VITAMIN D DEFICIENCY
     Dosage: 50000 IU, QWK
  15. AMLODIPINE BESYLATE [Concomitant]
     Indication: ESSENTIAL HYPERTENSION
     Dosage: 5 MG, QD
     Route: 048
  16. CALCIUM CARBONATE [Concomitant]
     Dosage: 1200 MG, QD
  17. NOVOLOG [Concomitant]

REACTIONS (4)
  - JOINT SWELLING [None]
  - ECZEMA [None]
  - CELLULITIS [None]
  - ERYTHEMA [None]
